FAERS Safety Report 9924660 (Version 1)
Quarter: 2014Q1

REPORT INFORMATION
  Report Type: Spontaneous
  Country: CA (occurrence: CA)
  Receive Date: 20140226
  Receipt Date: 20140226
  Transmission Date: 20141002
  Serious: Yes (Other)
  Sender: FDA-Public Use
  Company Number: CA-ASTRAZENECA-2014SE11891

PATIENT
  Age: 68 Year
  Sex: Female
  Weight: 69.2 kg

DRUGS (6)
  1. SYMBICORT [Suspect]
     Indication: ASTHMA
     Dosage: 2 BID, UNKNOWN
     Route: 055
  2. BUDESONIDE [Suspect]
     Indication: ASTHMA
     Dosage: 100 MG, TWO TIMES A DAY
     Route: 055
  3. PROLIA [Suspect]
     Indication: OSTEOPOROSIS POSTMENOPAUSAL
     Dosage: 60 MG EVERY SIX MONTHS
     Route: 058
     Dates: start: 20130629
  4. CALCIUM CARBONATE [Concomitant]
  5. ANDRIOL [Concomitant]
  6. VITAMIN D [Concomitant]

REACTIONS (1)
  - Ankle fracture [Recovering/Resolving]
